FAERS Safety Report 18022596 (Version 1)
Quarter: 2020Q3

REPORT INFORMATION
  Report Type: Spontaneous
  Country: PL (occurrence: PL)
  Receive Date: 20200715
  Receipt Date: 20200715
  Transmission Date: 20201103
  Serious: Yes (Other)
  Sender: FDA-Public Use
  Company Number: PL-ROCHE-2640142

PATIENT
  Age: 70 Year
  Sex: Female
  Weight: 71 kg

DRUGS (2)
  1. CAPECITABINE. [Suspect]
     Active Substance: CAPECITABINE
     Indication: BREAST CANCER
     Dosage: DOSE: FROM 3300 MG UP TO 4500 MG
     Route: 048
     Dates: start: 20181114
  2. CAPECITABINE. [Suspect]
     Active Substance: CAPECITABINE
     Route: 048
     Dates: start: 201905

REACTIONS (7)
  - Diplopia [Recovering/Resolving]
  - Diarrhoea [Recovering/Resolving]
  - Nail disorder [Recovering/Resolving]
  - Sensory loss [Recovering/Resolving]
  - Optic nerve injury [Recovering/Resolving]
  - Palmar-plantar erythrodysaesthesia syndrome [Recovering/Resolving]
  - Hypoaesthesia [Recovering/Resolving]
